FAERS Safety Report 11139608 (Version 3)
Quarter: 2016Q2

REPORT INFORMATION
  Report Type: Report from Study
  Country: US (occurrence: US)
  Receive Date: 20150527
  Receipt Date: 20160420
  Transmission Date: 20160815
  Serious: Yes (Death)
  Sender: FDA-Public Use
  Company Number: US-SA-2015SA068727

PATIENT
  Age: 57 Year
  Sex: Male
  Weight: 96.5 kg

DRUGS (1)
  1. CAMPATH [Suspect]
     Active Substance: ALEMTUZUMAB
     Indication: CHRONIC LYMPHOCYTIC LEUKAEMIA
     Route: 042
     Dates: start: 20150504, end: 20150508

REACTIONS (1)
  - Death [Fatal]

NARRATIVE: CASE EVENT DATE: 20150512
